FAERS Safety Report 16213798 (Version 1)
Quarter: 2019Q2

REPORT INFORMATION
  Report Type: Spontaneous
  Country: US (occurrence: US)
  Receive Date: 20190418
  Receipt Date: 20190418
  Transmission Date: 20190711
  Serious: Yes (Other)
  Sender: FDA-Public Use
  Company Number: US-BAUSCH-BL-2019-011412

PATIENT
  Age: 84 Year
  Sex: Female

DRUGS (1)
  1. XIFAXAN [Suspect]
     Active Substance: RIFAXIMIN
     Indication: HEPATIC ENCEPHALOPATHY PROPHYLAXIS
     Route: 065
     Dates: start: 201803, end: 2019

REACTIONS (7)
  - Disorientation [Not Recovered/Not Resolved]
  - Adverse event [Not Recovered/Not Resolved]
  - Insurance issue [Unknown]
  - Therapy cessation [Unknown]
  - Confusional state [Not Recovered/Not Resolved]
  - Ammonia increased [Unknown]
  - Fall [Unknown]

NARRATIVE: CASE EVENT DATE: 2019
